FAERS Safety Report 6920152-9 (Version None)
Quarter: 2010Q3

REPORT INFORMATION
  Report Type: 
  Country: None (occurrence: None)
  Receive Date: 20100809
  Receipt Date: 20100715
  Transmission Date: 20110219
  Serious: Yes (Hospitalization)
  Sender: FDA-Public Use
  Company Number: JP-SOLVAY-00310004481

PATIENT
  Age: 71 Year
  Sex: Female

DRUGS (13)
  1. LUVOX [Suspect]
     Indication: PRODUCT USED FOR UNKNOWN INDICATION
     Dosage: 50 MILLIGRAM(S) ORAL
     Route: 048
     Dates: end: 20100714
  2. DEPAS (ETIZOLAM) [Concomitant]
  3. CALBLOCK (AZELNIDIPINE) [Concomitant]
  4. GASMOTIN (MOSAPRIDE CITRATE) [Concomitant]
  5. DIAZEPAM [Concomitant]
  6. GLYCYRON (GLYCYRRHIZIC ACID_DL-METHIONINE COMBINED DRUG) [Concomitant]
  7. RIKKUNSHI-TO (HESPERIDIN AND L-ARGININE) [Concomitant]
  8. KENTON (TOCOPHEROL NICOTINATE) [Concomitant]
  9. LAC-B (BIFIDOBACTERIUM) [Concomitant]
  10. MAGMITT (MAGNESIUM OXIDE) [Concomitant]
  11. GRANDAXIN (TOFISOPAM) [Concomitant]
  12. MUCODYNE (CARBOCISTEINE) [Concomitant]
  13. FERROMIA (SODIUM FERROUS CITRATE) [Concomitant]

REACTIONS (1)
  - LIVER DISORDER [None]
